FAERS Safety Report 5485965-1 (Version None)
Quarter: 2007Q4

REPORT INFORMATION
  Report Type: 
  Country: None (occurrence: None)
  Receive Date: 20071012
  Receipt Date: 20071005
  Transmission Date: 20080405
  Serious: Yes (Hospitalization)
  Sender: FDA-Public Use
  Company Number: 2007SP020194

PATIENT
  Sex: Male

DRUGS (1)
  1. PEGATRON (PEGYLATED INTERFERON ALFA-2B W/RIBAVIRIN) [Suspect]
     Indication: HEPATITIS C
     Dosage: 120 MCG; QW; SC, 1000 MG; QD; PO
     Route: 048

REACTIONS (2)
  - ORCHITIS [None]
  - STAPHYLOCOCCAL INFECTION [None]
